FAERS Safety Report 21261880 (Version 1)
Quarter: 2022Q3

REPORT INFORMATION
  Report Type: Spontaneous
  Country: FR (occurrence: FR)
  Receive Date: 20220827
  Receipt Date: 20220827
  Transmission Date: 20221026
  Serious: Yes (Death)
  Sender: FDA-Public Use
  Company Number: None

PATIENT
  Age: 85 Year
  Sex: Male
  Weight: 73 kg

DRUGS (2)
  1. BISOPROLOL [Interacting]
     Active Substance: BISOPROLOL
     Indication: Bradycardia
     Dosage: 2 COMPRIMES DE 1.25 MG / JOUR
     Route: 048
     Dates: start: 20220716, end: 20220719
  2. AMIODARONE [Suspect]
     Active Substance: AMIODARONE
     Indication: Ventricular extrasystoles
     Dosage: 8 DOSAGE FORM, DAILY (8 COMPRIM?S DE 200 MG PAR SONDE ENT?RALE) COMPRIM? S?CABLE
     Route: 050
     Dates: start: 20220719, end: 20220719

REACTIONS (2)
  - Cardio-respiratory arrest [Fatal]
  - Cardiac arrest [Fatal]

NARRATIVE: CASE EVENT DATE: 20220719
